FAERS Safety Report 9930455 (Version 1)
Quarter: 2014Q1

REPORT INFORMATION
  Report Type: Spontaneous
  Country: US (occurrence: US)
  Receive Date: 20140227
  Receipt Date: 20140227
  Transmission Date: 20141002
  Serious: No
  Sender: FDA-Public Use
  Company Number: US-AMGEN-USASP2013085712

PATIENT
  Age: 21 Year
  Sex: Female

DRUGS (2)
  1. ENBREL [Suspect]
     Indication: RHEUMATOID ARTHRITIS
     Dosage: UNK UNK, QWK
     Route: 065
     Dates: start: 20130815, end: 201309
  2. ORENCIA [Concomitant]
     Dosage: UNK
     Dates: start: 2013

REACTIONS (2)
  - Hypersensitivity [Recovered/Resolved]
  - Local swelling [Recovered/Resolved]
